FAERS Safety Report 8462712-2 (Version None)
Quarter: 2012Q2

REPORT INFORMATION
  Report Type: 
  Country: None (occurrence: None)
  Receive Date: 20120625
  Receipt Date: 20120615
  Transmission Date: 20120825
  Serious: Yes (Death)
  Sender: FDA-Public Use
  Company Number: DK-TEVA-324192ISR

PATIENT
  Sex: Female

DRUGS (9)
  1. METHOTREXATE [Suspect]
     Dosage: 20MG/WEEK
     Route: 048
     Dates: start: 20100412, end: 20100423
  2. PREDNISOLONE [Concomitant]
     Dates: start: 20051213
  3. METHOTREXATE [Suspect]
     Indication: RHEUMATOID ARTHRITIS
     Dosage: 5MG/WEEK
     Route: 048
     Dates: start: 20031014, end: 20071108
  4. REMICADE [Suspect]
     Dosage: 300 MILLIGRAM; DOSAGE: 300 MG EVERY 8TH WEEK.
     Route: 042
     Dates: start: 20021126
  5. METHOTREXATE [Suspect]
     Dates: start: 20070313, end: 20070521
  6. METHOTREXATE [Suspect]
     Dates: start: 20070604, end: 20071108
  7. METHOTREXATE [Suspect]
     Dosage: 15MG/WEEK
     Route: 048
     Dates: start: 20071127, end: 20100412
  8. METHOTREXATE [Suspect]
     Dosage: 25MG/WEEK
     Route: 048
     Dates: start: 20100423, end: 20110701
  9. REMICADE [Suspect]
     Indication: RHEUMATOID ARTHRITIS
     Dosage: 300 MILLIGRAM; DOSAGE: 300 MG EVERY 8TH WEEK.
     Route: 042
     Dates: start: 20071108, end: 20071108

REACTIONS (2)
  - THYROID CANCER [None]
  - LUNG ADENOCARCINOMA [None]
